FAERS Safety Report 5587925-9 (Version None)
Quarter: 2008Q1

REPORT INFORMATION
  Report Type: 
  Country: None (occurrence: None)
  Receive Date: 20080111
  Receipt Date: 20070525
  Transmission Date: 20080703
  Serious: No
  Sender: FDA-Public Use
  Company Number: US-KINGPHARMUSA00001-K200700648

PATIENT

DRUGS (3)
  1. CORGARD [Suspect]
     Indication: HEART RATE ABNORMAL
     Dosage: 40 MG, QD
     Route: 048
     Dates: start: 19890101
  2. LANOXIN [Concomitant]
     Indication: HEART RATE
     Route: 048
  3. HYDROCHLOROTHIAZIDE [Concomitant]
     Indication: BLOOD PRESSURE
     Route: 048

REACTIONS (1)
  - BLOOD TRIGLYCERIDES INCREASED [None]
